FAERS Safety Report 6655283-4 (Version None)
Quarter: 2010Q1

REPORT INFORMATION
  Report Type: 
  Country: None (occurrence: None)
  Receive Date: 20100329
  Receipt Date: 20100324
  Transmission Date: 20100710
  Serious: Yes (Other)
  Sender: FDA-Public Use
  Company Number: US-BRISTOL-MYERS SQUIBB COMPANY-15035751

PATIENT
  Age: 59 Year
  Sex: Male

DRUGS (1)
  1. METFORMIN HCL [Suspect]

REACTIONS (2)
  - DRUG INTOLERANCE [None]
  - RENAL DISORDER [None]
